FAERS Safety Report 8854815 (Version 1)
Quarter: 2012Q4

REPORT INFORMATION
  Report Type: 
  Country: IL (occurrence: IL)
  Receive Date: 20121023
  Receipt Date: 20121023
  Transmission Date: 20130627
  Serious: Yes (Hospitalization)
  Sender: FDA-Public Use
  Company Number: PHHY2012IL094264

PATIENT
  Age: 84 Year
  Sex: Male

DRUGS (2)
  1. AFINITOR [Suspect]
     Indication: CARCINOID SYNDROME
     Dosage: 10 mg, daily
     Route: 048
  2. SANDOSTATIN LAR [Suspect]
     Indication: CARCINOID SYNDROME
     Dosage: 30 mg, Every 28 days
     Dates: start: 20120625

REACTIONS (5)
  - Neoplasm progression [Not Recovered/Not Resolved]
  - Malignant neoplasm progression [Not Recovered/Not Resolved]
  - Diarrhoea [Not Recovered/Not Resolved]
  - Mucosal inflammation [Not Recovered/Not Resolved]
  - Asthenia [Not Recovered/Not Resolved]
